FAERS Safety Report 17848740 (Version 1)
Quarter: 2020Q2

REPORT INFORMATION
  Report Type: Spontaneous
  Country: IT (occurrence: IT)
  Receive Date: 20200602
  Receipt Date: 20200602
  Transmission Date: 20200714
  Serious: Yes (Hospitalization)
  Sender: FDA-Public Use
  Company Number: NVSC2020IT148647

PATIENT
  Age: 68 Year
  Sex: Female

DRUGS (1)
  1. CEFTRIAXONE. [Suspect]
     Active Substance: CEFTRIAXONE
     Indication: URINARY TRACT INFECTION
     Dosage: 1 DF, CYCLIC
     Route: 030
     Dates: start: 20200108, end: 20200108

REACTIONS (5)
  - Blood lactic acid increased [Recovering/Resolving]
  - Fibrin D dimer increased [Recovering/Resolving]
  - Tachycardia [Recovering/Resolving]
  - Hypersensitivity [Recovering/Resolving]
  - Tachypnoea [Recovering/Resolving]

NARRATIVE: CASE EVENT DATE: 20200108
